FAERS Safety Report 4362579-8 (Version None)
Quarter: 2004Q2

REPORT INFORMATION
  Report Type: 
  Country: None (occurrence: None)
  Receive Date: 20040520
  Receipt Date: 20040507
  Transmission Date: 20050107
  Serious: Yes (Other)
  Sender: FDA-Public Use
  Company Number: US-JNJFOC-20040500994

PATIENT
  Age: 58 Year
  Sex: Female
  Weight: 98.8842 kg

DRUGS (5)
  1. REMICADE (INFLIXIMAB, RECOMBINANT) LYOPHILIZED POWDER [Suspect]
     Indication: RETINOPATHY
     Dosage: 3 MG/KG, INTRAVENOUS
     Route: 042
     Dates: start: 20030501, end: 20040401
  2. REMICADE (INFLIXIMAB, RECOMBINANT) LYOPHILIZED POWDER [Suspect]
  3. MYCOPHENOLATE MOFETIL (MYCOPHENOLATE MOFETIL) [Concomitant]
  4. ZANTAC [Concomitant]
  5. ZYRTEC [Concomitant]

REACTIONS (2)
  - ENDOMETRIAL CANCER [None]
  - VAGINAL HAEMORRHAGE [None]
